FAERS Safety Report 5688871-2 (Version None)
Quarter: 2008Q1

REPORT INFORMATION
  Report Type: 
  Country: None (occurrence: None)
  Receive Date: 20080331
  Receipt Date: 20050906
  Transmission Date: 20080703
  Serious: Yes (Death)
  Sender: FDA-Public Use
  Company Number: BE-ROCHE-417391

PATIENT
  Age: 59 Year
  Sex: Female
  Weight: 60 kg

DRUGS (6)
  1. PEGASYS [Suspect]
     Indication: HEPATITIS C
     Dosage: STRENGHT WAS REPORTED AS ^180 GAMMA^. DOSING FREQUENCY: WEEKLY.
     Route: 058
     Dates: start: 20031201
  2. COPEGUS [Suspect]
     Indication: HEPATITIS C
     Dosage: TWICE PER DAY.
     Route: 048
     Dates: start: 20031201
  3. PERINDOPRIL [Concomitant]
     Indication: HYPERTENSION
     Dosage: DAILY.
     Route: 048
     Dates: start: 20030601
  4. VITAMINE D [Concomitant]
     Indication: OSTEOPOROSIS
     Route: 048
     Dates: start: 20030101
  5. PROPRANOLOL [Concomitant]
     Dosage: TWICE PER DAY.
     Route: 048
     Dates: start: 20030601
  6. INSULIN [Concomitant]

REACTIONS (1)
  - DEATH [None]
